FAERS Safety Report 6105594-6 (Version None)
Quarter: 2009Q1

REPORT INFORMATION
  Report Type: 
  Country: None (occurrence: None)
  Receive Date: 20090304
  Receipt Date: 20090304
  Transmission Date: 20090719
  Serious: Yes (Other)
  Sender: FDA-Public Use
  Company Number: None

PATIENT
  Age: 15 Year
  Sex: Male
  Weight: 99.7913 kg

DRUGS (3)
  1. DEPAKOTE [Suspect]
     Indication: BIPOLAR DISORDER
     Dosage: 1500MG 3 TIMES A DAY PO
     Route: 048
     Dates: start: 20031007, end: 20031102
  2. DEPAKOTE [Suspect]
     Indication: BIPOLAR I DISORDER
     Dosage: 1500MG 3 TIMES A DAY PO
     Route: 048
     Dates: start: 20031007, end: 20031102
  3. DEPAKOTE [Suspect]
     Indication: PERSONALITY DISORDER
     Dosage: 1500MG 3 TIMES A DAY PO
     Route: 048
     Dates: start: 20031007, end: 20031102

REACTIONS (4)
  - HALLUCINATION [None]
  - JUDGEMENT IMPAIRED [None]
  - LOSS OF CONSCIOUSNESS [None]
  - VERTIGO [None]
